FAERS Safety Report 4337120-6 (Version None)
Quarter: 2004Q3

REPORT INFORMATION
  Report Type: 
  Country: None (occurrence: None)
  Receive Date: 20040408
  Receipt Date: 20040325
  Transmission Date: 20050211
  Serious: Yes (Life-Threatening, Hospitalization)
  Sender: FDA-Public Use
  Company Number: 2004-BP-03501AU

PATIENT
  Age: 66 Year
  Sex: Male

DRUGS (6)
  1. MOBIC [Suspect]
     Indication: OSTEOARTHRITIS
     Dosage: 7.5 MG (7.5 MG, 1 DAILY)
     Route: 048
     Dates: start: 20040105, end: 20040302
  2. MAREVAN [Concomitant]
  3. NEXIUM [Concomitant]
  4. DILATREND [Concomitant]
  5. LIPITOR [Concomitant]
  6. MONOPRIL [Concomitant]

REACTIONS (1)
  - DUODENAL ULCER HAEMORRHAGE [None]
